FAERS Safety Report 10496313 (Version 3)
Quarter: 2014Q4

REPORT INFORMATION
  Report Type: Report from Study
  Country: KR (occurrence: KR)
  Receive Date: 20141003
  Receipt Date: 20141017
  Transmission Date: 20150528
  Serious: Yes (Hospitalization)
  Sender: FDA-Public Use
  Company Number: KR-EXELIXIS-XL18414004786

PATIENT
  Age: 63 Year
  Sex: Male
  Weight: 53.5 kg

DRUGS (16)
  1. BIOFLOR [Concomitant]
  2. XL184 [Suspect]
     Active Substance: CABOZANTINIB
     Indication: HEPATOCELLULAR CARCINOMA
     Dosage: 60 MG, QD
     Route: 048
     Dates: start: 20140701, end: 2014
  3. SPIRONOLACTON [Concomitant]
     Active Substance: SPIRONOLACTONE
  4. ASCITE GRANULE [Concomitant]
  5. ARONAMIN-GOLD [Concomitant]
  6. XL184 [Suspect]
     Active Substance: CABOZANTINIB
     Dosage: 20 MG, QD
     Route: 048
     Dates: start: 2014, end: 20140919
  7. PHAZYME [Concomitant]
     Active Substance: DIMETHICONE 410
  8. GANATON [Concomitant]
     Active Substance: ITOPRIDE
  9. DICHLOZID [Concomitant]
  10. LOPERAMIDE [Concomitant]
     Active Substance: LOPERAMIDE
  11. DUPHALAC [Concomitant]
     Active Substance: LACTULOSE
  12. NORVASC [Concomitant]
     Active Substance: AMLODIPINE BESYLATE
  13. MORPHINE SULFATE. [Concomitant]
     Active Substance: MORPHINE SULFATE
  14. MEGACE [Concomitant]
     Active Substance: MEGESTROL ACETATE
  15. LEGALON [Concomitant]
     Active Substance: MILK THISTLE
  16. TIROPA [Concomitant]

REACTIONS (1)
  - Azotaemia [Not Recovered/Not Resolved]

NARRATIVE: CASE EVENT DATE: 20140922
